FAERS Safety Report 20174919 (Version 1)
Quarter: 2021Q4

REPORT INFORMATION
  Report Type: Spontaneous
  Country: US (occurrence: None)
  Receive Date: 20211209
  Receipt Date: 20211209
  Transmission Date: 20220303
  Serious: No
  Sender: FDA-Public Use
  Company Number: None

PATIENT
  Age: 66 Year
  Sex: Female
  Weight: 62.55 kg

DRUGS (18)
  1. REGEN-COV [Suspect]
     Active Substance: CASIRIVIMAB\IMDEVIMAB
     Indication: Product used for unknown indication
  2. DEXAMETHASONE [Concomitant]
     Active Substance: DEXAMETHASONE
  3. ACYCLOVIR [Concomitant]
     Active Substance: ACYCLOVIR
  4. CALCIUM CARBONATE [Concomitant]
     Active Substance: CALCIUM CARBONATE
  5. CETIRIZINE [Concomitant]
     Active Substance: CETIRIZINE HYDROCHLORIDE
  6. CYANOCOBALAMIN [Concomitant]
     Active Substance: CYANOCOBALAMIN
  7. DULAGLUTIDE [Concomitant]
     Active Substance: DULAGLUTIDE
  8. HUMALOG [Concomitant]
     Active Substance: INSULIN LISPRO
  9. Hydrocortizone cream [Concomitant]
  10. METOPROLOL TARTRATE [Concomitant]
     Active Substance: METOPROLOL TARTRATE
  11. Midostuarin [Concomitant]
  12. ONDANSETRON [Concomitant]
     Active Substance: ONDANSETRON
  13. Pentamadine [Concomitant]
  14. TACROLIMUS [Concomitant]
     Active Substance: TACROLIMUS
  15. TRIAMCINOLONE [Concomitant]
     Active Substance: TRIAMCINOLONE
  16. URSODIOL [Concomitant]
     Active Substance: URSODIOL
  17. VITAMIN D3 [Concomitant]
     Active Substance: CHOLECALCIFEROL
  18. Metamucil fiber [Concomitant]

REACTIONS (4)
  - Rash [None]
  - Rash [None]
  - Pruritus [None]
  - Thermal burn [None]

NARRATIVE: CASE EVENT DATE: 20211127
